FAERS Safety Report 9543036 (Version 1)
Quarter: 2013Q3

REPORT INFORMATION
  Report Type: Spontaneous
  Country: DE (occurrence: DE)
  Receive Date: 20130923
  Receipt Date: 20130923
  Transmission Date: 20140515
  Serious: Yes (Life-Threatening, Hospitalization)
  Sender: FDA-Public Use
  Company Number: GXKR2013DE003080

PATIENT
  Sex: 0

DRUGS (1)
  1. LEFLUNOMIDE [Suspect]
     Indication: RHEUMATOID ARTHRITIS
     Route: 048
     Dates: start: 201210, end: 201303

REACTIONS (2)
  - Subarachnoid haemorrhage [Recovering/Resolving]
  - Vasculitis cerebral [Recovering/Resolving]
